FAERS Safety Report 8459514-X (Version None)
Quarter: 2012Q2

REPORT INFORMATION
  Report Type: 
  Country: None (occurrence: None)
  Receive Date: 20120622
  Receipt Date: 20120614
  Transmission Date: 20120825
  Serious: Yes (Hospitalization)
  Sender: FDA-Public Use
  Company Number: US-US-EMD SERONO, INC.-7130539

PATIENT
  Sex: Female
  Weight: 64 kg

DRUGS (7)
  1. ATIVAN [Concomitant]
     Indication: PRODUCT USED FOR UNKNOWN INDICATION
  2. VICODIN [Concomitant]
     Indication: MIGRAINE
  3. REBIF [Suspect]
     Route: 058
  4. RITALIN [Concomitant]
     Indication: ATTENTION DEFICIT/HYPERACTIVITY DISORDER
  5. VICODIN [Concomitant]
     Indication: HEADACHE
  6. CITALOPRAM HYDROBROMIDE [Concomitant]
     Indication: BIPOLAR I DISORDER
  7. REBIF [Suspect]
     Indication: MULTIPLE SCLEROSIS
     Dates: start: 20120330

REACTIONS (5)
  - DIARRHOEA [None]
  - CEREBROVASCULAR ACCIDENT [None]
  - GRAND MAL CONVULSION [None]
  - LYMPHADENOPATHY [None]
  - INFLUENZA [None]
